FAERS Safety Report 23602570 (Version 1)
Quarter: 2024Q1

REPORT INFORMATION
  Report Type: Spontaneous
  Country: US (occurrence: None)
  Receive Date: 20240306
  Receipt Date: 20240306
  Transmission Date: 20240410
  Serious: Yes (Disabling)
  Sender: FDA-Public Use
  Company Number: None

PATIENT
  Age: 73 Year
  Sex: Female
  Weight: 68.04 kg

DRUGS (1)
  1. ATORVASTATIN [Suspect]
     Active Substance: ATORVASTATIN
     Indication: Product used for unknown indication
     Dates: start: 20231201, end: 20240115

REACTIONS (5)
  - Nasal discomfort [None]
  - Sinus pain [None]
  - Eye swelling [None]
  - Headache [None]
  - Neck pain [None]

NARRATIVE: CASE EVENT DATE: 20231201
